FAERS Safety Report 6892683-1 (Version None)
Quarter: 2010Q3

REPORT INFORMATION
  Report Type: 
  Country: None (occurrence: None)
  Receive Date: 20100731
  Receipt Date: 20081016
  Transmission Date: 20110219
  Serious: Yes (Other)
  Sender: FDA-Public Use
  Company Number: US-PFIZER INC-2008069955

PATIENT
  Sex: Male
  Weight: 86.2 kg

DRUGS (4)
  1. INSPRA [Suspect]
     Indication: BLOOD ALDOSTERONE INCREASED
     Route: 048
     Dates: start: 20070101
  2. INSPRA [Suspect]
     Indication: HYPERTENSION
     Route: 048
  3. INSPRA [Suspect]
     Indication: BLOOD POTASSIUM DECREASED
  4. STATINS [Concomitant]

REACTIONS (3)
  - BLOOD POTASSIUM DECREASED [None]
  - HYPERTENSION [None]
  - INTENTIONAL DRUG MISUSE [None]
